FAERS Safety Report 7312619-9 (Version None)
Quarter: 2011Q1

REPORT INFORMATION
  Report Type: 
  Country: None (occurrence: None)
  Receive Date: 20110224
  Receipt Date: 20110216
  Transmission Date: 20110831
  Serious: Yes (Hospitalization)
  Sender: FDA-Public Use
  Company Number: JP-AMGEN-JPNCT2010003781

PATIENT
  Age: 66 Year
  Sex: Male
  Weight: 86 kg

DRUGS (7)
  1. MUCOSOLVAN L [Concomitant]
     Route: 048
  2. SERETIDE                           /01420901/ [Concomitant]
     Route: 055
  3. ONON [Concomitant]
     Route: 048
  4. ADALAT [Concomitant]
     Route: 048
  5. RINDERON-VG [Concomitant]
     Route: 062
  6. PANITUMUMAB [Suspect]
     Indication: COLORECTAL CANCER
     Dosage: 4 MG/KG, Q2WK
     Route: 041
     Dates: start: 20100712, end: 20100921
  7. TOPSYM [Concomitant]
     Route: 062

REACTIONS (2)
  - INTESTINAL OBSTRUCTION [None]
  - DERMATITIS ACNEIFORM [None]
